FAERS Safety Report 5620209-9 (Version None)
Quarter: 2008Q1

REPORT INFORMATION
  Report Type: 
  Country: None (occurrence: None)
  Receive Date: 20080208
  Receipt Date: 20080128
  Transmission Date: 20080703
  Serious: Yes (Death, Hospitalization, Other)
  Sender: FDA-Public Use
  Company Number: A0549064A

PATIENT
  Age: 55 Year
  Sex: Male

DRUGS (8)
  1. ZYBAN [Suspect]
     Indication: DEPRESSION
     Dosage: 150MG TWICE PER DAY
     Route: 048
     Dates: start: 20040701
  2. BUPROPION HYDROCHLORIDE [Suspect]
     Indication: SMOKING CESSATION THERAPY
     Dosage: 150MG TWICE PER DAY
     Route: 048
  3. PAXIL [Concomitant]
     Indication: DEPRESSIVE SYMPTOM
  4. COUMADIN [Concomitant]
     Indication: MITRAL VALVE REPLACEMENT
     Dates: start: 20020101
  5. LIPITOR [Concomitant]
  6. TOPROL-XL [Concomitant]
  7. KLONOPIN [Concomitant]
  8. ASPIRIN [Concomitant]

REACTIONS (31)
  - ACUTE HEPATIC FAILURE [None]
  - ALANINE AMINOTRANSFERASE INCREASED [None]
  - ANTINUCLEAR ANTIBODY POSITIVE [None]
  - ASPARTATE AMINOTRANSFERASE INCREASED [None]
  - BILIRUBIN CONJUGATED INCREASED [None]
  - BLOOD ALKALINE PHOSPHATASE INCREASED [None]
  - BLOOD BILIRUBIN INCREASED [None]
  - CHOLESTASIS [None]
  - COAGULOPATHY [None]
  - CORONARY ARTERY DISEASE [None]
  - ECCHYMOSIS [None]
  - ENCEPHALOPATHY [None]
  - FATIGUE [None]
  - HAEMATURIA [None]
  - HEPATIC ENZYME INCREASED [None]
  - HEPATIC NECROSIS [None]
  - HEPATITIS [None]
  - HEPATOTOXICITY [None]
  - INCREASED TENDENCY TO BRUISE [None]
  - JAUNDICE [None]
  - MULTI-ORGAN FAILURE [None]
  - NAUSEA [None]
  - OCULAR ICTERUS [None]
  - PNEUMONIA [None]
  - PROTHROMBIN TIME PROLONGED [None]
  - PYREXIA [None]
  - RESPIRATORY FAILURE [None]
  - SEPSIS [None]
  - SMOOTH MUSCLE ANTIBODY POSITIVE [None]
  - VOMITING [None]
  - WHITE BLOOD CELL COUNT INCREASED [None]
